FAERS Safety Report 5387328-6 (Version None)
Quarter: 2007Q3

REPORT INFORMATION
  Report Type: 
  Country: None (occurrence: None)
  Receive Date: 20070716
  Receipt Date: 20070709
  Transmission Date: 20080115
  Serious: Yes (Other)
  Sender: FDA-Public Use
  Company Number: PHBS2007US11535

PATIENT
  Sex: Female

DRUGS (2)
  1. AREDIA [Suspect]
  2. ACTONEL [Suspect]

REACTIONS (3)
  - BONE DISORDER [None]
  - OSTEONECROSIS [None]
  - TOOTH EXTRACTION [None]
